FAERS Safety Report 24058244 (Version 1)
Quarter: 2024Q3

REPORT INFORMATION
  Report Type: Spontaneous
  Country: US (occurrence: US)
  Receive Date: 20240708
  Receipt Date: 20240708
  Transmission Date: 20241016
  Serious: Yes (Hospitalization, Other)
  Sender: AUROBINDO
  Company Number: US-AUROBINDO-AUR-APL-2024-032802

PATIENT
  Age: 76 Year
  Sex: Male

DRUGS (1)
  1. WARFARIN [Suspect]
     Active Substance: WARFARIN
     Indication: Prosthetic cardiac valve regurgitation
     Dosage: UNK
     Route: 065

REACTIONS (1)
  - Anticoagulant-related nephropathy [Unknown]
